FAERS Safety Report 5911819-X (Version None)
Quarter: 2008Q4

REPORT INFORMATION
  Report Type: 
  Country: None (occurrence: None)
  Receive Date: 20081008
  Receipt Date: 20080929
  Transmission Date: 20090506
  Serious: Yes (Death, Hospitalization, Other)
  Sender: FDA-Public Use
  Company Number: DE-BAYER-200825606GPV

PATIENT
  Age: 67 Year
  Sex: Male
  Weight: 84 kg

DRUGS (1)
  1. NEXAVAR [Suspect]
     Indication: MALIGNANT MELANOMA
     Route: 048
     Dates: start: 20080401, end: 20080801

REACTIONS (5)
  - ABDOMINAL PAIN [None]
  - ACUTE ABDOMEN [None]
  - COLITIS ULCERATIVE [None]
  - LARGE INTESTINE PERFORATION [None]
  - PALMAR-PLANTAR ERYTHRODYSAESTHESIA SYNDROME [None]
